FAERS Safety Report 8988910 (Version 1)
Quarter: 2012Q4

REPORT INFORMATION
  Report Type: 
  Country: IT (occurrence: IT)
  Receive Date: 20121227
  Receipt Date: 20121227
  Transmission Date: 20130627
  Serious: Yes (Hospitalization)
  Sender: FDA-Public Use
  Company Number: IT-ABBOTT-12P-083-1024803-00

PATIENT
  Age: 45 Year
  Sex: Female

DRUGS (2)
  1. EN [Suspect]
     Indication: PRODUCT USED FOR UNKNOWN INDICATION
     Dosage: Total; 0.5 unit
     Route: 048
     Dates: start: 20121130, end: 20121130
  2. TRITTICO [Suspect]
     Indication: PRODUCT USED FOR UNKNOWN INDICATION
     Dosage: Total
     Route: 048
     Dates: start: 20121130, end: 20121130

REACTIONS (1)
  - Intentional self-injury [Unknown]
